FAERS Safety Report 21647763 (Version 1)
Quarter: 2022Q4

REPORT INFORMATION
  Report Type: Report from Study
  Country: US (occurrence: US)
  Receive Date: 20221128
  Receipt Date: 20221128
  Transmission Date: 20230112
  Serious: No
  Sender: FDA-Public Use
  Company Number: US-ABBVIE-4167272

PATIENT
  Age: 35 Year
  Sex: Female

DRUGS (3)
  1. HUMIRA [Suspect]
     Active Substance: ADALIMUMAB
     Indication: Product used for unknown indication
     Route: 058
  2. Covid-19 vaccine [Concomitant]
     Indication: COVID-19 immunisation
     Dosage: DOSE1
     Route: 030
     Dates: start: 2021, end: 2021
  3. Covid-19 vaccine [Concomitant]
     Indication: COVID-19 immunisation
     Dosage: DOSE2
     Route: 030
     Dates: start: 2021, end: 2021

REACTIONS (3)
  - Injection site swelling [Unknown]
  - Injection site pruritus [Unknown]
  - Injection site reaction [Unknown]

NARRATIVE: CASE EVENT DATE: 20221013
